FAERS Safety Report 18042796 (Version 1)
Quarter: 2020Q3

REPORT INFORMATION
  Report Type: Spontaneous
  Country: US (occurrence: US)
  Receive Date: 20200717
  Receipt Date: 20200717
  Transmission Date: 20201103
  Serious: Yes (Death)
  Sender: FDA-Public Use
  Company Number: None

PATIENT
  Age: 72 Year
  Sex: Male
  Weight: 87 kg

DRUGS (17)
  1. VANCOMYCIN 1250 MG IV Q18H [Concomitant]
     Dates: start: 20200625, end: 20200627
  2. ASPIRIN 81 MG PO ONCE DAILY [Concomitant]
     Dates: start: 20200615, end: 20200629
  3. CONVALESCENT PLASMA [Concomitant]
     Active Substance: HUMAN PLASMA
     Dates: start: 20200620, end: 20200620
  4. ZOSYN 3.375 GM IV Q8HR [Concomitant]
     Dates: start: 20200625, end: 20200629
  5. AMLODIPINE 5 MG PO ONCE DAILY [Concomitant]
     Dates: start: 20200615, end: 20200627
  6. FLUOXETINE 20 MG PO ONCE DAILY [Concomitant]
     Dates: start: 20200615, end: 20200629
  7. METOPROLOL 25 MG PO Q12HR [Concomitant]
     Dates: start: 20200625, end: 20200627
  8. HYDROXYCHLOROQUINE 400 MG X 1 [Concomitant]
     Dates: start: 20200618, end: 20200618
  9. DONEPEZIL 10 MG PO W/ BREAKFAST [Concomitant]
     Dates: start: 20200615, end: 20200629
  10. DEXAMETHASONE 20 MG IV DAILY [Concomitant]
     Dates: start: 20200617, end: 20200622
  11. REMDESIVIR. [Suspect]
     Active Substance: REMDESIVIR
     Indication: COVID-19 PNEUMONIA
     Route: 042
     Dates: start: 20200619, end: 20200624
  12. ATORVASTATIN 80 MG PO DAILY [Concomitant]
     Dates: start: 20200615, end: 20200629
  13. TAMSULOSIN 0.4 MG PO ONCE DAILY [Concomitant]
     Dates: start: 20200615, end: 20200629
  14. ENOXAPARIN 100 MG SQ Q12HR [Concomitant]
     Dates: start: 20200617, end: 20200619
  15. ENOXAPARIN 90 MG SQ Q12HR [Concomitant]
     Dates: start: 20200619, end: 20200628
  16. LEVETIRACETAM 500 MG IV Q12HR [Concomitant]
     Dates: start: 20200625, end: 20200627
  17. ENOXAPARIN 40 MG SQ ONCE DAILY [Concomitant]
     Dates: start: 20200614, end: 20200617

REACTIONS (4)
  - Cardio-respiratory arrest [None]
  - Leukocytosis [None]
  - Hepatic enzyme increased [None]
  - Pneumonia aspiration [None]

NARRATIVE: CASE EVENT DATE: 20200630
